FAERS Safety Report 20346079 (Version 1)
Quarter: 2022Q1

REPORT INFORMATION
  Report Type: Spontaneous
  Country: CA (occurrence: CA)
  Receive Date: 20220118
  Receipt Date: 20220118
  Transmission Date: 20220423
  Serious: Yes (Other)
  Sender: FDA-Public Use
  Company Number: CA-PURDUE-USA-2022-0290717

PATIENT
  Age: 26 Year
  Sex: Female
  Weight: 58 kg

DRUGS (3)
  1. LIDOCAINE [Suspect]
     Active Substance: LIDOCAINE
     Indication: Local anaesthesia
     Dosage: 4 ML (BOLUS 2%)
     Route: 008
  2. LIDOCAINE [Suspect]
     Active Substance: LIDOCAINE
     Dosage: 400 MG, (20 ML OF 2%)
     Route: 008
  3. EPINEPHRINE [Suspect]
     Active Substance: EPINEPHRINE
     Indication: Local anaesthesia
     Dosage: 1:200,000
     Route: 008

REACTIONS (2)
  - Local anaesthetic systemic toxicity [Unknown]
  - Exposure during pregnancy [Unknown]
